FAERS Safety Report 10349673 (Version 2)
Quarter: 2014Q3

REPORT INFORMATION
  Report Type: Report from Study
  Country: KR (occurrence: None)
  Receive Date: 20140728
  Receipt Date: 20140815
  Transmission Date: 20150326
  Serious: Yes (Hospitalization)
  Sender: FDA-Public Use
  Company Number: KR-JNJFOC-20140711774

PATIENT
  Age: 72 Year
  Sex: Female
  Weight: 64 kg

DRUGS (23)
  1. ACETAMINOPHEN (PARACETAMOL) UNSPECIFIED [Concomitant]
  2. MOTILITONE (HERBAL PREPARATION) TABLET [Concomitant]
  3. CRAVIT (LEVOFLOXACIN) TABLETS [Concomitant]
  4. ACLOVA (ACICLOVIR) TABLET [Concomitant]
  5. DACOGEN [Suspect]
     Active Substance: DECITABINE
     Indication: MYELODYSPLASTIC SYNDROME
     Route: 042
     Dates: start: 20130201, end: 20130205
  6. CHLORPHENIRAMINE MALEATE (CHLORPHENAMINE MALEATE) [Concomitant]
  7. FAMOTIDINE (FAMOTIDINE) UNSPECIFIED [Concomitant]
  8. OXYCODONE HYDROCHLORIDE (OXYCODONE HYDROCHLORIDE) UNSPECIFIED [Concomitant]
  9. PRIVITUSS (CLOPERASTINE FENDIZOATE) SUSPENSION [Concomitant]
  10. NEUTROGIN (LENOGRASTIM) UNSPECIFIED [Concomitant]
  11. AMBROXOL HYDROCHLORIDE (AMBROXOL HYDROCHLORIDE) UNSPECIFIED [Concomitant]
  12. METOCLOPRAMIDE HYDROCHLORIDE (METOCLOPRAMIDE HYDROCHLORIDE) UNSPECIFIED [Concomitant]
  13. SUCRALFATE (SUCRALFATE) UNSPECIFIED [Concomitant]
  14. ACETAMINOPHEN AND TRAMADOL HYDROCHLORIDE (ULTRACET) UNSPECIFIED? [Concomitant]
  15. CLOPERASTINE FENDIZOATE (CLOPERASTINE FENDIZOATE) UNSPECIFIED [Concomitant]
  16. CALCIUM POLYCARBOPHIL (POLYCARBOPHIL CALCIUM) UNSPECIFIED [Concomitant]
  17. RAMOSETRON HYDORCHLORIDE (RAMOSETRON HYDROCHLORIDE) UNSPECIFIED [Concomitant]
  18. DIFLUCAN (FLUCONAZOLE) CAPSULE [Concomitant]
  19. ERDOSTEINE (ERDOSTEINE) [Concomitant]
  20. OTHER ANALGESICS AND ANTIPYRETICS (OTHER ANALGESISICS AND ANTIPYRETICS) [Concomitant]
  21. MEGESTROL ACETATE (MEGESTROL ACETATE) UNSPECIFIED [Concomitant]
  22. ZOLPIDEM TARTRATE (ZOLPIDEM TARTRATE) UNSPECIFIED [Concomitant]
  23. SEPTRIN (BACTRIM /00086101/) TABLET [Concomitant]

REACTIONS (4)
  - Haemoglobin decreased [None]
  - Red blood cell sedimentation rate increased [None]
  - Headache [None]
  - Asthenia [None]

NARRATIVE: CASE EVENT DATE: 20130412
